FAERS Safety Report 24989218 (Version 3)
Quarter: 2025Q1

REPORT INFORMATION
  Report Type: Spontaneous
  Country: BR (occurrence: BR)
  Receive Date: 20250220
  Receipt Date: 20250305
  Transmission Date: 20250409
  Serious: Yes (Other)
  Sender: BAXTER
  Company Number: BR-BAXTER-2025BAX011230

PATIENT
  Age: 69 Year
  Sex: Male
  Weight: 71 kg

DRUGS (5)
  1. PROPOFOL [Suspect]
     Active Substance: PROPOFOL
     Indication: Sedative therapy
     Route: 042
     Dates: start: 20250203, end: 20250203
  2. FENTANYL [Suspect]
     Active Substance: FENTANYL
     Indication: Colonoscopy
     Route: 065
     Dates: start: 20250203, end: 20250203
  3. MIDAZOLAM [Suspect]
     Active Substance: MIDAZOLAM
     Indication: Colonoscopy
     Route: 065
     Dates: start: 20250203, end: 20250203
  4. CALCIUM CHLORIDE\POTASSIUM CHLORIDE\SODIUM CHLORIDE\SODIUM LACTATE [Suspect]
     Active Substance: CALCIUM CHLORIDE\POTASSIUM CHLORIDE\SODIUM CHLORIDE\SODIUM LACTATE
     Indication: Colonoscopy
     Route: 065
     Dates: start: 20250203, end: 20250203
  5. BUTYLSCOPOLAMINE BROMIDE [Suspect]
     Active Substance: BUTYLSCOPOLAMINE BROMIDE
     Indication: Colonoscopy
     Route: 065
     Dates: start: 20250203, end: 20250203

REACTIONS (12)
  - Nephritis [Recovered/Resolved]
  - Sepsis [Recovered/Resolved]
  - Pyrexia [Recovered/Resolved]
  - Shock [Recovered/Resolved]
  - Hepatitis [Recovered/Resolved]
  - Headache [Unknown]
  - Tremor [Unknown]
  - Blood pressure decreased [Unknown]
  - Tachycardia [Unknown]
  - Vomiting [Unknown]
  - Multiple use of single-use product [Unknown]
  - Application site pain [Unknown]

NARRATIVE: CASE EVENT DATE: 20250203
